FAERS Safety Report 6389071-3 (Version None)
Quarter: 2009Q4

REPORT INFORMATION
  Report Type: 
  Country: None (occurrence: None)
  Receive Date: 20091006
  Receipt Date: 20090921
  Transmission Date: 20100525
  Serious: Yes (Hospitalization)
  Sender: FDA-Public Use
  Company Number: PHHY2009GB40671

PATIENT
  Age: 79 Year
  Sex: Male
  Weight: 60 kg

DRUGS (1)
  1. ZOLEDRONIC ACID [Suspect]
     Indication: PROSTATE CANCER METASTATIC
     Dosage: 4 MG, UNK
     Route: 042
     Dates: start: 20090810

REACTIONS (2)
  - MUSCULAR WEAKNESS [None]
  - PARAPLEGIA [None]
